FAERS Safety Report 18889320 (Version 2)
Quarter: 2021Q2

REPORT INFORMATION
  Report Type: Report from Study
  Country: US (occurrence: US)
  Receive Date: 20210212
  Receipt Date: 20210401
  Transmission Date: 20210717
  Serious: No
  Sender: FDA-Public Use
  Company Number: NVSC2021US029036

PATIENT
  Sex: Male

DRUGS (1)
  1. ENTRESTO [Suspect]
     Active Substance: SACUBITRIL\VALSARTAN
     Indication: CARDIAC FAILURE
     Dosage: 50 MG, BID
     Route: 048
     Dates: start: 202101

REACTIONS (4)
  - Dizziness [Not Recovered/Not Resolved]
  - Hypertension [Unknown]
  - Weight fluctuation [Not Recovered/Not Resolved]
  - Pain in extremity [Unknown]
